FAERS Safety Report 12020004 (Version 1)
Quarter: 2016Q1

REPORT INFORMATION
  Report Type: Report from Study
  Country: US (occurrence: US)
  Receive Date: 20160206
  Receipt Date: 20160206
  Transmission Date: 20160526
  Serious: No
  Sender: FDA-Public Use
  Company Number: US-ABBVIE-15K-163-1462982-00

PATIENT
  Age: 20 Year
  Sex: Male

DRUGS (1)
  1. HUMIRA [Suspect]
     Active Substance: ADALIMUMAB
     Indication: CROHN^S DISEASE
     Route: 065
     Dates: start: 201506

REACTIONS (12)
  - Procedural vomiting [Recovering/Resolving]
  - Injection site discolouration [Unknown]
  - Injection site pruritus [Unknown]
  - Wisdom teeth removal [Recovering/Resolving]
  - Procedural pain [Recovering/Resolving]
  - Pyrexia [Unknown]
  - Procedural nausea [Recovering/Resolving]
  - Injection site papule [Unknown]
  - Injection site rash [Unknown]
  - Post procedural haemorrhage [Unknown]
  - Post procedural diarrhoea [Recovering/Resolving]
  - Injection site erythema [Unknown]

NARRATIVE: CASE EVENT DATE: 2015
